FAERS Safety Report 6238168-7 (Version None)
Quarter: 2009Q2

REPORT INFORMATION
  Report Type: 
  Country: None (occurrence: None)
  Receive Date: 20090617
  Receipt Date: 20090617
  Transmission Date: 20091009
  Serious: Yes (Hospitalization)
  Sender: FDA-Public Use
  Company Number: None

PATIENT
  Age: 68 Year
  Sex: Male
  Weight: 92 kg

DRUGS (1)
  1. EXENETIDE 5 MCG PEN [Suspect]
     Indication: TYPE 2 DIABETES MELLITUS
     Dosage: 5 MCG BID SQ
     Route: 058
     Dates: start: 20090609, end: 20090614

REACTIONS (1)
  - PANCREATITIS [None]
